FAERS Safety Report 10197295 (Version 4)
Quarter: 2014Q3

REPORT INFORMATION
  Report Type: Spontaneous
  Country: JP (occurrence: JP)
  Receive Date: 20140527
  Receipt Date: 20140715
  Transmission Date: 20150326
  Serious: Yes (Life-Threatening, Hospitalization)
  Sender: FDA-Public Use
  Company Number: JP-GLAXOSMITHKLINE-B0996531A

PATIENT
  Age: 48 Year
  Sex: Male

DRUGS (11)
  1. PREDONINE [Concomitant]
     Active Substance: PREDNISOLONE\PREDNISOLONE ACETATE\PREDNISOLONE SODIUM SUCCINATE
     Dosage: 20MG TWICE PER DAY
     Route: 048
     Dates: start: 20140412
  2. CALONAL [Concomitant]
     Active Substance: ACETAMINOPHEN
     Dosage: 2G TWICE PER DAY
     Route: 048
     Dates: start: 20140429
  3. GABAPEN [Concomitant]
     Active Substance: GABAPENTIN
     Indication: EPILEPSY
     Dosage: 400MG PER DAY
     Route: 048
     Dates: start: 20140412, end: 20140421
  4. TAKEPRON [Concomitant]
     Active Substance: LANSOPRAZOLE
     Dosage: 15MG PER DAY
     Route: 048
     Dates: start: 20140412
  5. GABAPEN [Concomitant]
     Active Substance: GABAPENTIN
     Indication: EPILEPSY
     Dosage: 200MG PER DAY
     Route: 048
     Dates: start: 20140529, end: 20140603
  6. LAMICTAL [Suspect]
     Active Substance: LAMOTRIGINE
     Indication: STATUS EPILEPTICUS
     Dosage: 25MG PER DAY
     Route: 048
     Dates: start: 20140417, end: 20140430
  7. LAMICTAL [Suspect]
     Active Substance: LAMOTRIGINE
     Indication: STATUS EPILEPTICUS
     Dosage: 50MG TWICE PER DAY
     Route: 048
     Dates: start: 20140522
  8. LAMICTAL [Suspect]
     Active Substance: LAMOTRIGINE
     Indication: STATUS EPILEPTICUS
     Dosage: 25MG TWICE PER DAY
     Route: 048
     Dates: start: 20140501, end: 20140514
  9. DORMICUM [Concomitant]
     Active Substance: MIDAZOLAM\MIDAZOLAM HYDROCHLORIDE
     Dosage: 360MG PER DAY
     Dates: start: 20140315
  10. ALEVIATIN [Concomitant]
     Active Substance: PHENYTOIN SODIUM
     Indication: EPILEPSY
     Dosage: 300MG PER DAY
     Route: 048
     Dates: start: 20140423, end: 20140430
  11. LAMICTAL [Suspect]
     Active Substance: LAMOTRIGINE
     Indication: STATUS EPILEPTICUS
     Dosage: 25MG THREE TIMES PER DAY
     Route: 048
     Dates: start: 20140515, end: 20140521

REACTIONS (7)
  - Eosinophil count increased [Recovering/Resolving]
  - Hepatic function abnormal [Unknown]
  - Rash generalised [Recovered/Resolved]
  - Erythema [Recovered/Resolved]
  - Hyperthermia [Unknown]
  - Renal impairment [Unknown]
  - Condition aggravated [Unknown]

NARRATIVE: CASE EVENT DATE: 201404
